FAERS Safety Report 6636413-7 (Version None)
Quarter: 2010Q1

REPORT INFORMATION
  Report Type: 
  Country: None (occurrence: None)
  Receive Date: 20100226
  Receipt Date: 20091006
  Transmission Date: 20100710
  Serious: Yes (Other)
  Sender: FDA-Public Use
  Company Number: WAES 0910USA01272

PATIENT
  Age: 63 Year
  Sex: Female

DRUGS (8)
  1. PRINIVIL [Suspect]
     Dosage: PO
     Route: 048
  2. GLUCOPHAGE [Suspect]
     Indication: TYPE 2 DIABETES MELLITUS
     Dosage: 1000 MG/PO
     Route: 048
  3. METFORMIN HCL [Suspect]
     Indication: TYPE 2 DIABETES MELLITUS
     Dosage: 1000 MG/BID
     Dates: end: 20090401
  4. HYDROCODONE UNK [Suspect]
     Indication: BACK PAIN
  5. OXYBUTYNINCL UNK [Suspect]
     Indication: BACK PAIN
  6. XANAX [Suspect]
     Indication: BACK PAIN
  7. ALEVE [Suspect]
     Indication: PAIN
     Dosage: PRN
  8. AVANDIA [Suspect]
     Dosage: PRN

REACTIONS (1)
  - RENAL IMPAIRMENT [None]
